FAERS Safety Report 4608292-0 (Version None)
Quarter: 2005Q2

REPORT INFORMATION
  Report Type: 
  Country: None (occurrence: None)
  Receive Date: 20050303
  Receipt Date: 20041210
  Transmission Date: 20051028
  Serious: No
  Sender: FDA-Public Use
  Company Number: 2004BI001513

PATIENT
  Sex: Male

DRUGS (2)
  1. AMEVIVE [Suspect]
     Indication: PSORIASIS
     Dosage: 15 MG;QM;IM,15 MG;QM;IM
     Route: 030
     Dates: start: 20040301, end: 20040101
  2. AMEVIVE [Suspect]
     Indication: PSORIASIS
     Dosage: 15 MG;QM;IM,15 MG;QM;IM
     Route: 030
     Dates: start: 20040101

REACTIONS (3)
  - CD4 LYMPHOCYTES INCREASED [None]
  - LYMPHOCYTE COUNT INCREASED [None]
  - T-LYMPHOCYTE COUNT INCREASED [None]
